FAERS Safety Report 21711339 (Version 1)
Quarter: 2022Q4

REPORT INFORMATION
  Report Type: Spontaneous
  Country: IT (occurrence: IT)
  Receive Date: 20221212
  Receipt Date: 20221212
  Transmission Date: 20230113
  Serious: Yes (Other)
  Sender: FDA-Public Use
  Company Number: IT-BAYER-2022P021778

PATIENT

DRUGS (3)
  1. AMOXICILLIN [Suspect]
     Active Substance: AMOXICILLIN
     Indication: Bacterial prostatitis
     Dosage: UNK
     Route: 065
  2. CIPROFLOXACIN [Suspect]
     Active Substance: CIPROFLOXACIN
     Indication: Bacterial prostatitis
     Dosage: UNK
     Route: 065
     Dates: start: 202203, end: 202203
  3. CIPROFLOXACIN [Suspect]
     Active Substance: CIPROFLOXACIN
     Dosage: UNK
     Dates: start: 202208

REACTIONS (2)
  - Prostatitis [Not Recovered/Not Resolved]
  - Penile burning sensation [Not Recovered/Not Resolved]

NARRATIVE: CASE EVENT DATE: 20220201
